FAERS Safety Report 5038911-9 (Version None)
Quarter: 2006Q2

REPORT INFORMATION
  Report Type: 
  Country: None (occurrence: None)
  Receive Date: 20060627
  Receipt Date: 20060627
  Transmission Date: 20061013
  Serious: Yes (Other)
  Sender: FDA-Public Use
  Company Number: None

PATIENT
  Age: 57 Year
  Sex: Female
  Weight: 67.586 kg

DRUGS (1)
  1. WARFARIN SODIUM [Suspect]
     Indication: ARTERIAL THROMBOSIS
     Dosage: 5 MG DAILY PO
     Route: 048
     Dates: start: 20060101

REACTIONS (2)
  - FLATULENCE [None]
  - NAUSEA [None]
